FAERS Safety Report 18111415 (Version 1)
Quarter: 2020Q3

REPORT INFORMATION
  Report Type: Report from Study
  Country: US (occurrence: US)
  Receive Date: 20200804
  Receipt Date: 20200804
  Transmission Date: 20201103
  Serious: No
  Sender: FDA-Public Use
  Company Number: NVSC2020US211227

PATIENT
  Sex: Male

DRUGS (1)
  1. COSENTYX [Suspect]
     Active Substance: SECUKINUMAB
     Indication: PSORIASIS
     Dosage: UNK UNK, QW
     Route: 058

REACTIONS (6)
  - Skin exfoliation [Unknown]
  - Rash [Unknown]
  - Erythema [Unknown]
  - Drug ineffective [Unknown]
  - Dry skin [Unknown]
  - Pruritus [Unknown]
